FAERS Safety Report 7608973-0 (Version None)
Quarter: 2011Q3

REPORT INFORMATION
  Report Type: 
  Country: None (occurrence: None)
  Receive Date: 20110714
  Receipt Date: 20110706
  Transmission Date: 20111222
  Serious: Yes (Other)
  Sender: FDA-Public Use
  Company Number: FR-GLAXOSMITHKLINE-B0731747A

PATIENT
  Sex: Male

DRUGS (2)
  1. LAMICTAL [Suspect]
     Indication: EPILEPSY
     Route: 064
  2. FOLIC ACID [Concomitant]
     Route: 064

REACTIONS (2)
  - AUTISM [None]
  - MATERNAL EXPOSURE DURING PREGNANCY [None]
